FAERS Safety Report 12736127 (Version 1)
Quarter: 2016Q3

REPORT INFORMATION
  Report Type: Report from Study
  Country: US (occurrence: US)
  Receive Date: 20160913
  Receipt Date: 20160913
  Transmission Date: 20161109
  Serious: Yes (Hospitalization, Other)
  Sender: FDA-Public Use
  Company Number: US-ROCHE-782948

PATIENT
  Age: 55 Year
  Sex: Male
  Weight: 70.9 kg

DRUGS (4)
  1. BEVACIZUMAB [Suspect]
     Active Substance: BEVACIZUMAB
     Indication: PROSTATE CANCER METASTATIC
     Dosage: INTRAVENOUS 30-90 MINUTES ON DAY ONE, LAST ADMINISTERED DOSE: 01 FEB 2011, DRUG DISCONTINUED
     Route: 042
  2. LENALIDOMIDE [Suspect]
     Active Substance: LENALIDOMIDE
     Indication: PROSTATE CANCER METASTATIC
     Dosage: ON DAYS 1-14, LAST ADMINISTERED DOSE: 15 MAY 2011
     Route: 048
  3. DOCETAXEL. [Suspect]
     Active Substance: DOCETAXEL
     Indication: PROSTATE CANCER METASTATIC
     Dosage: INTRAVENOUS OVER 60 MINUTES ON DAY ONE, LAST ADMINISTERED DOSE:  02 MAY 2011
     Route: 042
  4. PREDNISONE. [Suspect]
     Active Substance: PREDNISONE
     Indication: PROSTATE CANCER METASTATIC
     Dosage: LAST ADMINISTERED DOSE: 24 MAY 2011
     Route: 048
     Dates: start: 20100615

REACTIONS (7)
  - Pyrexia [Recovered/Resolved]
  - Myocardial infarction [Unknown]
  - Musculoskeletal chest pain [Unknown]
  - Anaemia [Recovered/Resolved]
  - Anaemia [Unknown]
  - Myocardial infarction [Recovered/Resolved]
  - Lung infection [Unknown]

NARRATIVE: CASE EVENT DATE: 20110201
